FAERS Safety Report 7550656-X (Version None)
Quarter: 2011Q2

REPORT INFORMATION
  Report Type: 
  Country: None (occurrence: None)
  Receive Date: 20110616
  Receipt Date: 20110608
  Transmission Date: 20111010
  Serious: Yes (Death)
  Sender: FDA-Public Use
  Company Number: JP-CELGENEUS-087-21880-10111408

PATIENT
  Sex: Male

DRUGS (4)
  1. LOCHOLEST [Concomitant]
     Indication: HYPERTENSION
     Dosage: 20 MILLIGRAM
     Route: 048
     Dates: start: 20060101, end: 20101220
  2. REVLIMID [Suspect]
     Dosage: 5 MILLIGRAM
     Route: 048
     Dates: start: 20101004, end: 20101020
  3. CALSLOT [Concomitant]
     Indication: HYPERTENSION
     Dosage: 10
     Route: 048
     Dates: start: 20060101, end: 20101220
  4. DILTIAZEM HCL [Concomitant]
     Indication: HYPERTENSION
     Dosage: 100 MILLIGRAM
     Route: 048
     Dates: start: 20060101, end: 20101220

REACTIONS (2)
  - PNEUMONIA [None]
  - WHITE BLOOD CELL COUNT DECREASED [None]
